FAERS Safety Report 15760429 (Version 1)
Quarter: 2018Q4

REPORT INFORMATION
  Report Type: Spontaneous
  Country: BR (occurrence: BR)
  Receive Date: 20181226
  Receipt Date: 20181226
  Transmission Date: 20190205
  Serious: Yes (Hospitalization)
  Sender: FDA-Public Use
  Company Number: BR-NOVAST LABORATORIES, LTD-BR-2018NOV000432

PATIENT
  Age: 87 Year
  Sex: Female

DRUGS (3)
  1. CILOSTAZOL. [Suspect]
     Active Substance: CILOSTAZOL
     Indication: PULMONARY EMBOLISM
     Dosage: UNK UNK, QD
  2. CARISOPRODOL\ASPIRIN [Suspect]
     Active Substance: ASPIRIN\CARISOPRODOL
     Dosage: UNK, RE-STARTED
  3. CARISOPRODOL\ASPIRIN [Suspect]
     Active Substance: ASPIRIN\CARISOPRODOL
     Indication: PULMONARY EMBOLISM
     Dosage: UNK UNK, QD

REACTIONS (2)
  - Intestinal haematoma [Unknown]
  - Aortic dissection rupture [Unknown]
